FAERS Safety Report 4350940-7 (Version None)
Quarter: 2004Q2

REPORT INFORMATION
  Report Type: 
  Country: None (occurrence: None)
  Receive Date: 20040430
  Receipt Date: 20040420
  Transmission Date: 20050107
  Serious: Yes (Hospitalization)
  Sender: FDA-Public Use
  Company Number: JP-GLAXOSMITHKLINE-B0330295A

PATIENT
  Age: 78 Year
  Sex: Female

DRUGS (3)
  1. SAWACILLIN [Suspect]
     Indication: NASOPHARYNGITIS
     Route: 048
     Dates: end: 20040410
  2. LACTOBACILLUS BIFIDUS [Suspect]
     Dates: end: 20040410
  3. IBUPROFEN [Suspect]
     Dates: end: 20040410

REACTIONS (2)
  - PYREXIA [None]
  - RASH [None]
